FAERS Safety Report 8844401 (Version 1)
Quarter: 2012Q4

REPORT INFORMATION
  Report Type: 
  Country: US (occurrence: US)
  Receive Date: 20121017
  Receipt Date: 20121017
  Transmission Date: 20130627
  Serious: No
  Sender: FDA-Public Use
  Company Number: US-PFIZER INC-2012255072

PATIENT

DRUGS (1)
  1. SOLU-MEDROL [Suspect]
     Dosage: UNK

REACTIONS (4)
  - Pain [Unknown]
  - Muscle contractions involuntary [Unknown]
  - Hyperhidrosis [Unknown]
  - Burning sensation [Unknown]
